FAERS Safety Report 17145403 (Version 1)
Quarter: 2019Q4

REPORT INFORMATION
  Report Type: Spontaneous
  Country: US (occurrence: US)
  Receive Date: 20191212
  Receipt Date: 20191212
  Transmission Date: 20200122
  Serious: Yes (Other)
  Sender: FDA-Public Use
  Company Number: US-ABBVIE-19K-163-3186358-00

PATIENT
  Sex: Female

DRUGS (1)
  1. HUMIRA [Suspect]
     Active Substance: ADALIMUMAB
     Indication: PSORIASIS
     Route: 058
     Dates: start: 201901, end: 2019

REACTIONS (4)
  - Surgery [Recovered/Resolved]
  - Pneumonia [Unknown]
  - Incorrect dose administered [Recovered/Resolved]
  - Aspiration [Unknown]

NARRATIVE: CASE EVENT DATE: 2019
